FAERS Safety Report 10167221 (Version 1)
Quarter: 2014Q2

REPORT INFORMATION
  Report Type: Spontaneous
  Country: US (occurrence: None)
  Receive Date: 20140509
  Receipt Date: 20140509
  Transmission Date: 20141212
  Serious: Yes (Hospitalization)
  Sender: FDA-Public Use
  Company Number: None

PATIENT
  Age: 22 Year
  Sex: Female
  Weight: 79.38 kg

DRUGS (1)
  1. MIRENA IUD [Suspect]
     Dates: start: 20140110, end: 20140308

REACTIONS (2)
  - Pain [None]
  - Muscle spasms [None]
